FAERS Safety Report 10777382 (Version 1)
Quarter: 2015Q1

REPORT INFORMATION
  Report Type: Spontaneous
  Country: US (occurrence: US)
  Receive Date: 20150209
  Receipt Date: 20150209
  Transmission Date: 20150721
  Serious: Yes (Hospitalization)
  Sender: FDA-Public Use
  Company Number: US-CELGENEUS-USA-2015015263

PATIENT
  Sex: Male

DRUGS (2)
  1. THALOMID [Suspect]
     Active Substance: THALIDOMIDE
     Indication: ANAEMIA
     Route: 048
     Dates: start: 20150114
  2. THALOMID [Suspect]
     Active Substance: THALIDOMIDE
     Indication: PLASMA CELL MYELOMA
     Route: 048
     Dates: start: 201412

REACTIONS (1)
  - Pneumonia [Recovered/Resolved]
